FAERS Safety Report 8378165-9 (Version None)
Quarter: 2012Q2

REPORT INFORMATION
  Report Type: 
  Country: None (occurrence: None)
  Receive Date: 20120522
  Receipt Date: 20120517
  Transmission Date: 20120825
  Serious: No
  Sender: FDA-Public Use
  Company Number: US-PFIZER INC-2012056491

PATIENT
  Sex: Female
  Weight: 91 kg

DRUGS (5)
  1. AMITRIPTYLINE [Concomitant]
     Dosage: UNK
  2. METFORMIN [Concomitant]
     Indication: DIABETES MELLITUS
     Dosage: UNK
  3. LYRICA [Suspect]
     Indication: FIBROMYALGIA
     Dosage: 150 MG, 2X/DAY
     Route: 048
     Dates: start: 20080101
  4. PROPRANOLOL [Concomitant]
     Dosage: UNK
  5. LISINOPRIL [Concomitant]
     Dosage: UNK

REACTIONS (4)
  - HEADACHE [None]
  - WITHDRAWAL SYNDROME [None]
  - DIARRHOEA [None]
  - TREMOR [None]
